FAERS Safety Report 11532291 (Version 2)
Quarter: 2015Q4

REPORT INFORMATION
  Report Type: Spontaneous
  Country: US (occurrence: US)
  Receive Date: 20150921
  Receipt Date: 20151209
  Transmission Date: 20160304
  Serious: Yes (Other)
  Sender: FDA-Public Use
  Company Number: US-CELGENEUS-USA-2015090115

PATIENT
  Sex: Male
  Weight: 97.61 kg

DRUGS (7)
  1. BOTOX [Concomitant]
     Active Substance: ONABOTULINUMTOXINA
     Indication: PRODUCT USED FOR UNKNOWN INDICATION
     Route: 065
  2. OTEZLA [Suspect]
     Active Substance: APREMILAST
     Indication: PSORIATIC ARTHROPATHY
     Route: 048
     Dates: start: 20150303
  3. OTEZLA [Suspect]
     Active Substance: APREMILAST
     Indication: PSORIASIS
     Route: 048
     Dates: start: 201507
  4. TESTOSTERONE. [Concomitant]
     Active Substance: TESTOSTERONE
     Indication: PRODUCT USED FOR UNKNOWN INDICATION
     Route: 065
  5. ALLERGY SHOT [Concomitant]
     Active Substance: UNSPECIFIED INGREDIENT
     Indication: PRODUCT USED FOR UNKNOWN INDICATION
     Route: 065
  6. SULFAMETHOXAZOLE [Concomitant]
     Active Substance: SULFAMETHOXAZOLE
     Indication: PRODUCT USED FOR UNKNOWN INDICATION
     Route: 065
  7. CIALIS [Concomitant]
     Active Substance: TADALAFIL
     Indication: PRODUCT USED FOR UNKNOWN INDICATION
     Route: 065

REACTIONS (9)
  - Nausea [Recovered/Resolved]
  - Diarrhoea [Recovered/Resolved]
  - Drug cross-reactivity [Recovered/Resolved]
  - Urinary retention [Not Recovered/Not Resolved]
  - Injection site pain [Recovered/Resolved]
  - Adverse drug reaction [Unknown]
  - Headache [Recovered/Resolved]
  - Urinary tract infection [Not Recovered/Not Resolved]
  - Depression [Recovered/Resolved]

NARRATIVE: CASE EVENT DATE: 2015
